FAERS Safety Report 7377475-1 (Version None)
Quarter: 2011Q1

REPORT INFORMATION
  Report Type: 
  Country: None (occurrence: None)
  Receive Date: 20110316
  Receipt Date: 20110303
  Transmission Date: 20110831
  Serious: Yes (Hospitalization)
  Sender: FDA-Public Use
  Company Number: 1000018761

PATIENT
  Age: 68 Year
  Sex: Female
  Weight: 53 kg

DRUGS (4)
  1. ROFLUMILAST (ROFLUMILAST) (TABLETS) [Suspect]
     Indication: CHRONIC OBSTRUCTIVE PULMONARY DISEASE
     Dosage: 500 MCG (500 MCG, 1 IN 1 D),
     Dates: start: 20101201, end: 20110128
  2. SULTANOL (SALBUTAMOL) [Concomitant]
  3. THEOPHYLLINE [Concomitant]
  4. FORMATRIS (FORMOTEROL FUMARATE) [Concomitant]

REACTIONS (8)
  - OESOPHAGEAL OBSTRUCTION [None]
  - INCREASED VISCOSITY OF BRONCHIAL SECRETION [None]
  - FEAR OF DEATH [None]
  - DYSPNOEA [None]
  - WEIGHT DECREASED [None]
  - ANXIETY [None]
  - SINUSITIS [None]
  - INCREASED UPPER AIRWAY SECRETION [None]
